FAERS Safety Report 4397896-9 (Version None)
Quarter: 2004Q3

REPORT INFORMATION
  Report Type: 
  Country: None (occurrence: None)
  Receive Date: 20040714
  Receipt Date: 20040713
  Transmission Date: 20050211
  Serious: Yes (Disabling)
  Sender: FDA-Public Use
  Company Number: FR-MERCK-0407FRA00036

PATIENT
  Age: 69 Year
  Sex: Male
  Weight: 68 kg

DRUGS (1)
  1. ZOCOR [Suspect]
     Indication: DYSLIPIDAEMIA
     Route: 048

REACTIONS (2)
  - AMYOTROPHY [None]
  - NEUROPATHY PERIPHERAL [None]
